FAERS Safety Report 14305127 (Version 1)
Quarter: 2017Q4

REPORT INFORMATION
  Report Type: Report from Study
  Country: JP (occurrence: JP)
  Receive Date: 20171219
  Receipt Date: 20171219
  Transmission Date: 20180321
  Serious: Yes (Life-Threatening, Other)
  Sender: FDA-Public Use
  Company Number: JP-OTSUKA-010433

PATIENT
  Age: 54 Year
  Sex: Female
  Weight: 75.5 kg

DRUGS (27)
  1. ARIPIPRAZOLE. [Suspect]
     Active Substance: ARIPIPRAZOLE
     Dosage: 12 MG, QD
     Route: 048
     Dates: start: 20100112, end: 20100131
  2. RISPERDAL [Concomitant]
     Active Substance: RISPERIDONE
     Indication: SCHIZOPHRENIA
     Dosage: 8 MG, QD
     Route: 048
     Dates: end: 20100124
  3. TASMOLIN [Concomitant]
     Active Substance: BIPERIDEN
     Dosage: 2 MG, QD
     Route: 048
  4. EUGLUCON UNK [Concomitant]
     Dosage: 2.5 G, DAILY DOSE
     Route: 048
     Dates: start: 20090112
  5. BENZALIN [Concomitant]
     Active Substance: NITRAZEPAM
     Indication: INSOMNIA
     Dosage: 5 MG, QD
     Route: 048
     Dates: start: 20100222
  6. RISPERDAL [Concomitant]
     Active Substance: RISPERIDONE
     Dosage: 7 MG, QD
     Route: 048
     Dates: start: 20100125, end: 20100131
  7. FUROSEMIDE. [Concomitant]
     Active Substance: FUROSEMIDE
     Dosage: 20 MG, QD
     Route: 048
  8. JUVELA NICOTINATE [Concomitant]
     Active Substance: TOCOPHERYL NICOTINATE, D-.ALPHA.
     Dosage: 300 MG, QD
     Route: 048
     Dates: start: 20090708
  9. RISPERDAL [Concomitant]
     Active Substance: RISPERIDONE
     Dosage: 5 MG, QD
     Route: 048
     Dates: start: 20100208, end: 20100221
  10. SENNA LEAF [Concomitant]
     Active Substance: SENNA LEAF
     Dosage: 0.5 G, DAILY DOSE
     Route: 048
  11. HIBERNA [Concomitant]
     Active Substance: PROMETHAZINE HYDROCHLORIDE
     Indication: PRURITUS
     Dosage: 25 MG, QD
     Route: 048
     Dates: start: 20091123
  12. MEILAX [Concomitant]
     Active Substance: ETHYL LOFLAZEPATE
     Indication: SCHIZOPHRENIA
     Dosage: 1 MG, QD
     Route: 048
     Dates: start: 20100412, end: 20100430
  13. GASTER [Concomitant]
     Active Substance: FAMOTIDINE
     Dosage: 40 MG, QD
     Route: 042
     Dates: start: 20100425, end: 20100425
  14. MAGMITT [Concomitant]
     Active Substance: MAGNESIUM OXIDE
     Dosage: 500 MG, QD
     Route: 048
     Dates: start: 20100430
  15. CRAVIT [Concomitant]
     Active Substance: LEVOFLOXACIN
     Indication: URINARY TRACT INFECTION
     Dosage: 500 MG, QD
     Route: 048
     Dates: start: 20100501, end: 20100503
  16. GASTER [Concomitant]
     Active Substance: FAMOTIDINE
     Dosage: 20 MG, QD
     Route: 042
     Dates: start: 20100426, end: 20100430
  17. ARIPIPRAZOLE. [Suspect]
     Active Substance: ARIPIPRAZOLE
     Indication: SCHIZOPHRENIA
     Dosage: 3 MG, QD
     Route: 048
     Dates: start: 20091225, end: 20100111
  18. RISPERDAL [Concomitant]
     Active Substance: RISPERIDONE
     Dosage: 3 MG, QD
     Route: 048
     Dates: start: 20100430, end: 20100509
  19. TETRAMIDE [Concomitant]
     Active Substance: MIANSERIN
     Indication: DEPRESSIVE SYMPTOM
     Dosage: 30 MG, QD
     Route: 048
     Dates: start: 20100430
  20. ARIPIPRAZOLE. [Suspect]
     Active Substance: ARIPIPRAZOLE
     Dosage: 18 MG, QD
     Route: 048
     Dates: start: 20100201, end: 20100207
  21. FUROSEMIDE. [Concomitant]
     Active Substance: FUROSEMIDE
  22. ARIPIPRAZOLE. [Suspect]
     Active Substance: ARIPIPRAZOLE
     Dosage: 30 MG, QD
     Route: 048
     Dates: start: 20100430, end: 20100511
  23. RISPERDAL [Concomitant]
     Active Substance: RISPERIDONE
     Dosage: 6 MG, QD
     Route: 048
     Dates: start: 20100201, end: 20100207
  24. RISPERDAL [Concomitant]
     Active Substance: RISPERIDONE
     Dosage: 4 MG, QD
     Route: 048
     Dates: start: 20100222, end: 20100425
  25. GLYCYRRHIZA EXTRACT [Concomitant]
     Active Substance: GLYCYRRHIZA EXTRACT
     Dosage: 3.9 G, DAILY DOSE
     Route: 048
     Dates: start: 20060901
  26. ARIPIPRAZOLE. [Suspect]
     Active Substance: ARIPIPRAZOLE
     Dosage: 24 MG, QD
     Route: 048
     Dates: start: 20100208, end: 20100425
  27. RISPERDAL [Concomitant]
     Active Substance: RISPERIDONE
     Dosage: 2 MG, QD
     Route: 048
     Dates: start: 20100510

REACTIONS (9)
  - Seizure [Unknown]
  - Pneumonia aspiration [Recovered/Resolved]
  - Urinary tract infection [Recovered/Resolved]
  - Depressive symptom [Not Recovered/Not Resolved]
  - Water intoxication [Recovered/Resolved]
  - Glucose urine present [Unknown]
  - Initial insomnia [Unknown]
  - Glycosylated haemoglobin increased [Unknown]
  - Blood glucose increased [Unknown]

NARRATIVE: CASE EVENT DATE: 20100112
